FAERS Safety Report 8141343-8 (Version None)
Quarter: 2012Q1

REPORT INFORMATION
  Report Type: 
  Country: None (occurrence: None)
  Receive Date: 20120216
  Receipt Date: 20120213
  Transmission Date: 20120608
  Serious: Yes (Death, Hospitalization)
  Sender: FDA-Public Use
  Company Number: GB-ROCHE-1008106

PATIENT
  Sex: Female

DRUGS (8)
  1. LUCENTIS [Suspect]
     Indication: AGE-RELATED MACULAR DEGENERATION
     Route: 050
     Dates: start: 20100201
  2. FUROSEMIDE [Concomitant]
  3. CYANOCOBALAMIN [Concomitant]
  4. METFORMIN HCL [Concomitant]
  5. PARACETAMOL [Concomitant]
  6. TERAZOSIN HCL [Concomitant]
  7. PROPRANOLOL [Concomitant]
  8. RAMIPRIL [Concomitant]

REACTIONS (2)
  - DEATH [None]
  - CELLULITIS [None]
